FAERS Safety Report 8955700 (Version 1)
Quarter: 2012Q4

REPORT INFORMATION
  Report Type: Spontaneous
  Country: US (occurrence: None)
  Receive Date: 20121205
  Receipt Date: 20121205
  Transmission Date: 20130627
  Serious: No
  Sender: FDA-Public Use
  Company Number: None

PATIENT

DRUGS (1)
  1. ATIVAN [Suspect]
     Dosage: Ativan Lorazepam Injectable IV Push 2 mg
     Route: 042

REACTIONS (5)
  - Restlessness [None]
  - Somnolence [None]
  - Apnoea [None]
  - Hyporeflexia [None]
  - Hyporesponsive to stimuli [None]
